FAERS Safety Report 5296527-3 (Version None)
Quarter: 2007Q2

REPORT INFORMATION
  Report Type: 
  Country: None (occurrence: None)
  Receive Date: 20070413
  Receipt Date: 20070405
  Transmission Date: 20071010
  Serious: Yes (Hospitalization, Other)
  Sender: FDA-Public Use
  Company Number: FR-GENENTECH-217228

PATIENT
  Sex: Male

DRUGS (2)
  1. RAPTIVA [Suspect]
     Indication: PSORIASIS
     Dosage: UNK, UNK
     Route: 058
     Dates: start: 20050713, end: 20050723
  2. TILDIEM [Concomitant]
     Indication: HYPERTENSION

REACTIONS (2)
  - ERYTHRODERMIC PSORIASIS [None]
  - PEMPHIGOID [None]
